FAERS Safety Report 9471597 (Version 1)
Quarter: 2013Q3

REPORT INFORMATION
  Report Type: Spontaneous
  Country: FR (occurrence: FR)
  Receive Date: 20130822
  Receipt Date: 20130822
  Transmission Date: 20140515
  Serious: Yes (Other)
  Sender: FDA-Public Use
  Company Number: FR-WATSON-2013-15126

PATIENT
  Age: 60 Year
  Sex: Male

DRUGS (5)
  1. GLIMEPIRIDE (UNKNOWN) [Suspect]
     Indication: DIABETES MELLITUS
     Dosage: 4 MG, DAILY
     Route: 048
  2. METFORMIN (UNKNOWN) [Suspect]
     Indication: DIABETES MELLITUS
     Dosage: 1000 MG, BID
     Route: 048
  3. ALPRAZOLAM (UNKNOWN) [Suspect]
     Indication: ANXIETY
     Dosage: 0.5 MG, DAILY
     Route: 048
  4. TENORDATE [Suspect]
     Indication: HYPERTENSION
     Route: 048
  5. FENOFIBRATE (UNKNOWN) [Suspect]
     Indication: BLOOD CHOLESTEROL
     Route: 048

REACTIONS (2)
  - Platelet count decreased [Not Recovered/Not Resolved]
  - White blood cell count decreased [Not Recovered/Not Resolved]
